FAERS Safety Report 6054151-9 (Version None)
Quarter: 2009Q1

REPORT INFORMATION
  Report Type: 
  Country: None (occurrence: None)
  Receive Date: 20090127
  Receipt Date: 20090121
  Transmission Date: 20090719
  Serious: Yes (Death)
  Sender: FDA-Public Use
  Company Number: AU-CELGENEUS-008-C5013-07101216

PATIENT
  Sex: Male
  Weight: 69 kg

DRUGS (4)
  1. REVLIMID [Suspect]
     Route: 048
     Dates: start: 20070905, end: 20070927
  2. DEXAMETHASONE [Suspect]
     Route: 065
     Dates: start: 20070906, end: 20071003
  3. DEXAMETHASONE [Suspect]
     Dosage: REDUCED BY ONE LEVEL
     Route: 065
     Dates: start: 20071004, end: 20071020
  4. AMITRIPTYLINE HCL [Concomitant]
     Indication: DRUG USE FOR UNKNOWN INDICATION
     Route: 065

REACTIONS (1)
  - SUDDEN DEATH [None]
